FAERS Safety Report 4329011-1 (Version None)
Quarter: 2004Q1

REPORT INFORMATION
  Report Type: 
  Country: None (occurrence: None)
  Receive Date: 20040325
  Receipt Date: 20040206
  Transmission Date: 20041129
  Serious: No
  Sender: FDA-Public Use
  Company Number: USA-2004-0012901

PATIENT
  Sex: Female

DRUGS (2)
  1. SPECTRACEF [Suspect]
     Indication: BACTERIAL INFECTION
     Dosage: 200 MG, BID, ORAL
     Route: 048
  2. SPECTRACEF [Suspect]
     Indication: BRONCHITIS ACUTE
     Dosage: 200 MG, BID, ORAL
     Route: 048

REACTIONS (1)
  - DRUG INEFFECTIVE [None]
